FAERS Safety Report 22265099 (Version 2)
Quarter: 2023Q2

REPORT INFORMATION
  Report Type: Spontaneous
  Country: US (occurrence: US)
  Receive Date: 20230428
  Receipt Date: 20230601
  Transmission Date: 20230722
  Serious: No
  Sender: FDA-Public Use
  Company Number: US-PFIZER INC-202300168781

PATIENT
  Age: 30 Year
  Sex: Male
  Weight: 117.93 kg

DRUGS (6)
  1. PAXLOVID [Suspect]
     Active Substance: NIRMATRELVIR\RITONAVIR
     Indication: COVID-19 treatment
     Dosage: [PF-07321332 300 MG]/[RITONAVIR 100 MG]; 2X/DAY
     Route: 048
     Dates: start: 20230120
  2. PAROXETINE [Concomitant]
     Active Substance: PAROXETINE
     Dosage: 30 MG, 1X/DAY
  3. PAROXETINE [Concomitant]
     Active Substance: PAROXETINE
     Dosage: 30 MG, ALTERNATE DAY
  4. ALLERFEX [Concomitant]
     Indication: Antiallergic therapy
     Dosage: 180 MG, 1X/DAY
  5. MONTELUKAST [Concomitant]
     Active Substance: MONTELUKAST SODIUM
     Dosage: 10 MG, 1X/DAY
  6. MELATONIN [Concomitant]
     Active Substance: MELATONIN
     Indication: Sleep disorder
     Dosage: ONE 3MG AND ONE 5MG (TOTAL 8 MG), 1X/DAY

REACTIONS (3)
  - Hepatic enzyme increased [Unknown]
  - COVID-19 [Unknown]
  - Disease recurrence [Unknown]

NARRATIVE: CASE EVENT DATE: 20230301
